FAERS Safety Report 8833311 (Version 1)
Quarter: 2012Q4

REPORT INFORMATION
  Report Type: 
  Country: FR (occurrence: FR)
  Receive Date: 20121010
  Receipt Date: 20121010
  Transmission Date: 20130627
  Serious: Yes (Other)
  Sender: FDA-Public Use
  Company Number: FR-JNJFOC-20120912557

PATIENT

DRUGS (1)
  1. METHYLPHENIDATE [Suspect]
     Indication: PRODUCT USED FOR UNKNOWN INDICATION
     Route: 042

REACTIONS (11)
  - Drug abuse [Unknown]
  - Drug diversion [Unknown]
  - Depression [Unknown]
  - Abscess [Unknown]
  - Intentional drug misuse [Unknown]
  - Off label use [Unknown]
  - Incorrect route of drug administration [Unknown]
  - Insomnia [Unknown]
  - Anxiety [Unknown]
  - Cardiovascular disorder [Unknown]
  - Weight decreased [Unknown]
